FAERS Safety Report 26007878 (Version 5)
Quarter: 2025Q4

REPORT INFORMATION
  Report Type: Spontaneous
  Country: JP (occurrence: JP)
  Receive Date: 20251106
  Receipt Date: 20251219
  Transmission Date: 20260117
  Serious: Yes (Hospitalization)
  Sender: ELI LILLY AND COMPANY
  Company Number: JP-ELI_LILLY_AND_COMPANY-JP202511002522

PATIENT
  Age: 14 Year
  Sex: Female
  Weight: 48 kg

DRUGS (4)
  1. MOUNJARO [Suspect]
     Active Substance: TIRZEPATIDE
     Indication: Off label use
     Dosage: 5 MG
     Route: 058
     Dates: start: 20251029
  2. MOUNJARO [Suspect]
     Active Substance: TIRZEPATIDE
     Indication: Off label use
     Dosage: 5 MG
     Route: 058
     Dates: start: 20251029
  3. MOUNJARO [Suspect]
     Active Substance: TIRZEPATIDE
     Indication: Off label use
     Dosage: 5 MG
     Route: 058
     Dates: start: 20251029
  4. MOUNJARO [Suspect]
     Active Substance: TIRZEPATIDE
     Indication: Off label use
     Dosage: 5 MG
     Route: 058
     Dates: start: 20251029

REACTIONS (7)
  - Dehydration [Recovered/Resolved]
  - Decreased appetite [Unknown]
  - Hypophagia [Unknown]
  - Anorexia nervosa [Unknown]
  - Vomiting [Recovered/Resolved]
  - Off label use [Unknown]
  - Blood glucose decreased [Recovering/Resolving]

NARRATIVE: CASE EVENT DATE: 20251029
